FAERS Safety Report 17179433 (Version 2)
Quarter: 2019Q4

REPORT INFORMATION
  Report Type: Spontaneous
  Country: US (occurrence: US)
  Receive Date: 20191219
  Receipt Date: 20191219
  Transmission Date: 20200122
  Serious: No
  Sender: FDA-Public Use
  Company Number: US-FERRINGPH-2019FE01770

PATIENT
  Sex: Female

DRUGS (3)
  1. NOVAREL [Suspect]
     Active Substance: CHORIOGONADOTROPIN ALFA
     Indication: PREGNANCY
  2. MENOPUR [Suspect]
     Active Substance: FOLLITROPIN\LUTEINIZING HORMONE
     Indication: OVULATION INDUCTION
     Route: 065
  3. NOVAREL [Suspect]
     Active Substance: CHORIOGONADOTROPIN ALFA
     Indication: OVULATION INDUCTION
     Route: 065

REACTIONS (1)
  - Drug ineffective [Not Recovered/Not Resolved]
